FAERS Safety Report 4902070-0 (Version None)
Quarter: 2006Q1

REPORT INFORMATION
  Report Type: 
  Country: None (occurrence: None)
  Receive Date: 20060206
  Receipt Date: 20060125
  Transmission Date: 20060701
  Serious: Yes (Death)
  Sender: FDA-Public Use
  Company Number: BW-GLAXOSMITHKLINE-B0259386B

PATIENT
  Age: 2 Day
  Sex: Male

DRUGS (4)
  1. ZIDOVUDINE [Suspect]
     Indication: ANTIVIRAL PROPHYLAXIS
     Dosage: 4MGK TWICE PER DAY
     Route: 048
     Dates: start: 20020121, end: 20020204
  2. NEVIRAPINE [Suspect]
     Indication: HIV INFECTION
     Dosage: 2MGK SINGLE DOSE
     Route: 048
     Dates: start: 20020123, end: 20020123
  3. ZIDOVUDINE [Suspect]
     Dates: start: 20020101, end: 20020120
  4. BLINDED TRIAL MEDICATION [Suspect]
     Indication: ANTIVIRAL PROPHYLAXIS
     Dosage: 200MG SINGLE DOSE
     Dates: start: 20020120, end: 20020120

REACTIONS (1)
  - INJURY ASPHYXIATION [None]
